FAERS Safety Report 7658952-2 (Version None)
Quarter: 2011Q3

REPORT INFORMATION
  Report Type: 
  Country: None (occurrence: None)
  Receive Date: 20110805
  Receipt Date: 20110802
  Transmission Date: 20111222
  Serious: Yes (Hospitalization)
  Sender: FDA-Public Use
  Company Number: DE-ABBOTT-11P-062-0843198-00

PATIENT
  Sex: Female

DRUGS (1)
  1. HUMIRA [Suspect]
     Indication: PSORIASIS
     Route: 058
     Dates: start: 20100118

REACTIONS (6)
  - GASTRIC DISORDER [None]
  - MUCOSAL DRYNESS [None]
  - REHABILITATION THERAPY [None]
  - DIZZINESS [None]
  - DRY SKIN [None]
  - DEPRESSION [None]
